APPROVED DRUG PRODUCT: HC (HYDROCORTISONE)
Active Ingredient: HYDROCORTISONE
Strength: 1%
Dosage Form/Route: OINTMENT;TOPICAL
Application: A080481 | Product #002
Applicant: C AND M PHARMACAL INC
Approved: Approved Prior to Jan 1, 1982 | RLD: No | RS: No | Type: DISCN